FAERS Safety Report 10028900 (Version 1)
Quarter: 2014Q1

REPORT INFORMATION
  Report Type: Spontaneous
  Country: US (occurrence: US)
  Receive Date: 20140321
  Receipt Date: 20140321
  Transmission Date: 20141002
  Serious: Yes (Hospitalization, Other)
  Sender: FDA-Public Use
  Company Number: US-JNJFOC-20140306772

PATIENT
  Age: 48 Year
  Sex: Female

DRUGS (9)
  1. PALIPERIDONE [Suspect]
     Indication: PARANOIA
     Route: 048
  2. PALIPERIDONE [Suspect]
     Indication: PARANOIA
     Dosage: STARTED 2 MONTHS AGO
     Route: 048
  3. PALIPERIDONE [Suspect]
     Indication: DISINHIBITION
     Route: 048
  4. PALIPERIDONE [Suspect]
     Indication: DISINHIBITION
     Dosage: STARTED 2 MONTHS AGO
     Route: 048
  5. PALIPERIDONE [Suspect]
     Indication: MOOD ALTERED
     Route: 048
  6. PALIPERIDONE [Suspect]
     Indication: MOOD ALTERED
     Dosage: STARTED 2 MONTHS AGO
     Route: 048
  7. CITALOPRAM [Suspect]
     Indication: PARANOIA
     Dosage: 1 YEAR BEFORE PRESENTED TO EMERGENCY DEPARTMENT
     Route: 065
  8. CITALOPRAM [Suspect]
     Indication: DISINHIBITION
     Dosage: 1 YEAR BEFORE PRESENTED TO EMERGENCY DEPARTMENT
     Route: 065
  9. CITALOPRAM [Suspect]
     Indication: MOOD ALTERED
     Dosage: 1 YEAR BEFORE PRESENTED TO EMERGENCY DEPARTMENT
     Route: 065

REACTIONS (18)
  - Hyperprolactinaemia [Unknown]
  - Hypothermia [Unknown]
  - Persecutory delusion [Unknown]
  - Drug prescribing error [Unknown]
  - Drug intolerance [Unknown]
  - Mental status changes [Recovered/Resolved]
  - Transaminases increased [Recovered/Resolved]
  - Sinus bradycardia [Unknown]
  - Hypotension [Unknown]
  - Activities of daily living impaired [Unknown]
  - Confusional state [Unknown]
  - Thrombocytopenia [Recovered/Resolved]
  - Electrocardiogram change [Unknown]
  - Coagulation time abnormal [Unknown]
  - Depressed level of consciousness [Unknown]
  - Depressed level of consciousness [Unknown]
  - Faecal incontinence [Unknown]
  - Metabolic disorder [Unknown]
